FAERS Safety Report 13258729 (Version 6)
Quarter: 2018Q2

REPORT INFORMATION
  Report Type: Spontaneous
  Country: US (occurrence: US)
  Receive Date: 20170222
  Receipt Date: 20180530
  Transmission Date: 20180711
  Serious: No
  Sender: FDA-Public Use
  Company Number: PHEH2017US004476

PATIENT
  Age: 53 Year
  Sex: Male

DRUGS (1)
  1. VOTRIENT [Suspect]
     Active Substance: PAZOPANIB HYDROCHLORIDE
     Indication: RENAL CANCER
     Dosage: 4 DF, QD (800 MG)
     Route: 048
     Dates: start: 20170118

REACTIONS (2)
  - Skin depigmentation [Unknown]
  - Hair colour changes [Unknown]

NARRATIVE: CASE EVENT DATE: 20170201
